FAERS Safety Report 9915099 (Version 2)
Quarter: 2014Q2

REPORT INFORMATION
  Report Type: Report from Study
  Country: PL (occurrence: PL)
  Receive Date: 20140220
  Receipt Date: 20140421
  Transmission Date: 20141212
  Serious: Yes (Life-Threatening, Hospitalization)
  Sender: FDA-Public Use
  Company Number: BE-ASTRAZENECA-2014SE10761

PATIENT
  Age: 72 Year
  Sex: Female

DRUGS (6)
  1. TICAGRELOR [Suspect]
     Indication: ACUTE CORONARY SYNDROME
     Route: 048
     Dates: start: 20131018
  2. ACIDUM ACETYLSALICYLICUM [Suspect]
     Indication: ACUTE CORONARY SYNDROME
     Route: 048
  3. CLOPIDOGREL [Concomitant]
  4. BISOPROLOL [Concomitant]
  5. ATORVASTATIN [Concomitant]
  6. DOXAZOSIN [Concomitant]

REACTIONS (2)
  - Drug ineffective [Recovered/Resolved with Sequelae]
  - Acute myocardial infarction [Recovered/Resolved with Sequelae]
